FAERS Safety Report 4749207-4 (Version None)
Quarter: 2005Q3

REPORT INFORMATION
  Report Type: 
  Country: None (occurrence: None)
  Receive Date: 20050812
  Receipt Date: 20050420
  Transmission Date: 20060218
  Serious: Yes (Hospitalization)
  Sender: FDA-Public Use
  Company Number: 402671

PATIENT
  Age: 57 Year
  Sex: Female
  Weight: 59 kg

DRUGS (2)
  1. PEGASYS [Suspect]
     Indication: HEPATITIS C
     Dosage: 180 MCG/ML 1 PER WEEK SUBCUTANEOUS
     Route: 058
     Dates: start: 20041015
  2. COPEGUS [Suspect]
     Indication: HEPATITIS C
     Dosage: 5 DOSE FORM DAILY ORAL
     Route: 048
     Dates: start: 20041015

REACTIONS (7)
  - ASTHENIA [None]
  - BLOOD GLUCOSE INCREASED [None]
  - DIABETES MELLITUS [None]
  - RASH [None]
  - RED BLOOD CELL COUNT ABNORMAL [None]
  - THIRST [None]
  - VISION BLURRED [None]
